FAERS Safety Report 16575037 (Version 6)
Quarter: 2022Q4

REPORT INFORMATION
  Report Type: Spontaneous
  Country: FR (occurrence: FR)
  Receive Date: 20190715
  Receipt Date: 20221004
  Transmission Date: 20230113
  Serious: Yes (Death, Hospitalization, Other)
  Sender: FDA-Public Use
  Company Number: PHHY2019FR161146

PATIENT
  Age: 75 Year
  Sex: Male
  Weight: 72 kg

DRUGS (7)
  1. ESIDREX [Suspect]
     Active Substance: HYDROCHLOROTHIAZIDE
     Indication: Blood pressure management
     Dosage: 0.5 MG
     Route: 048
     Dates: start: 20180908, end: 20181002
  2. PANTOPRAZOLE [Suspect]
     Active Substance: PANTOPRAZOLE
     Indication: Product used for unknown indication
     Dosage: 20 MG
     Route: 048
     Dates: start: 20180908
  3. ATENOLOL [Suspect]
     Active Substance: ATENOLOL
     Indication: Septic shock
     Dosage: 60 MG
     Route: 065
     Dates: start: 20180908, end: 20181002
  4. PERINDOPRIL ERBUMINE [Suspect]
     Active Substance: PERINDOPRIL ERBUMINE
     Indication: Septic shock
     Dosage: 4 MG
     Route: 048
     Dates: start: 20180908, end: 20181002
  5. PERINDOPRIL ERBUMINE [Suspect]
     Active Substance: PERINDOPRIL ERBUMINE
     Indication: Off label use
  6. MEROPENEM [Suspect]
     Active Substance: MEROPENEM
     Indication: Infection
     Dosage: 3 MG
     Route: 042
     Dates: start: 20180908, end: 20180930
  7. AMLODIPINE BESYLATE [Suspect]
     Active Substance: AMLODIPINE BESYLATE
     Indication: Septic shock
     Dosage: 5 MG
     Route: 048
     Dates: start: 20180908, end: 20181002

REACTIONS (6)
  - Stenotrophomonas infection [Fatal]
  - Septic shock [Fatal]
  - Pseudomonas infection [Fatal]
  - Multiple organ dysfunction syndrome [Fatal]
  - Erysipelas [Recovered/Resolved]
  - Dermo-hypodermitis [Recovered/Resolved]

NARRATIVE: CASE EVENT DATE: 20180101
